FAERS Safety Report 8082549-6 (Version None)
Quarter: 2012Q1

REPORT INFORMATION
  Report Type: 
  Country: None (occurrence: None)
  Receive Date: 20120127
  Receipt Date: 20110218
  Transmission Date: 20120608
  Serious: No
  Sender: FDA-Public Use
  Company Number: US-ABBOTT-11P-163-0706741-00

PATIENT
  Age: 74 Year
  Sex: Female
  Weight: 66.738 kg

DRUGS (2)
  1. HUMIRA [Suspect]
     Indication: CROHN'S DISEASE
     Dates: start: 20101101
  2. BACTRIM [Suspect]
     Indication: URINARY TRACT INFECTION
     Dates: start: 20110101, end: 20110101

REACTIONS (4)
  - URINARY TRACT INFECTION [None]
  - PRURITUS GENERALISED [None]
  - SWELLING [None]
  - DYSURIA [None]
